FAERS Safety Report 17403479 (Version 1)
Quarter: 2020Q1

REPORT INFORMATION
  Report Type: Spontaneous
  Country: CA (occurrence: CA)
  Receive Date: 20200211
  Receipt Date: 20200211
  Transmission Date: 20200409
  Serious: Yes (Hospitalization)
  Sender: FDA-Public Use
  Company Number: CA-TEVA-2020-CA-1182416

PATIENT
  Age: 16 Year
  Sex: Male
  Weight: 51 kg

DRUGS (12)
  1. ACETAMINOPHEN. [Concomitant]
     Active Substance: ACETAMINOPHEN
  2. TRIMETHOPRIM- SULFAMETHOXAZOLE [Concomitant]
     Active Substance: SULFAMETHOXAZOLE\TRIMETHOPRIM
  3. IRINOTECAN HYDROCHLORIDE. [Suspect]
     Active Substance: IRINOTECAN HYDROCHLORIDE
     Indication: EWING^S SARCOMA METASTATIC
     Route: 042
  4. DEXAMETHASONE. [Concomitant]
     Active Substance: DEXAMETHASONE
  5. DIMENHYDRINATE. [Concomitant]
     Active Substance: DIMENHYDRINATE
  6. VINCRISTINE SULFATE INJECTION USP [Suspect]
     Active Substance: VINCRISTINE SULFATE
     Indication: EWING^S SARCOMA METASTATIC
     Route: 042
  7. OLANZAPINE. [Concomitant]
     Active Substance: OLANZAPINE
  8. MORPHINE [Concomitant]
     Active Substance: MORPHINE
  9. ONDANSETRON [Concomitant]
     Active Substance: ONDANSETRON
  10. POLYETHYLENE GLYCOL [Concomitant]
     Active Substance: POLYETHYLENE GLYCOLS
  11. TEMOZOLOMIDE. [Suspect]
     Active Substance: TEMOZOLOMIDE
     Indication: EWING^S SARCOMA METASTATIC
     Dosage: 250 MILLIGRAM DAILY;
     Route: 048
  12. DIPHENHYDRAMINE. [Concomitant]
     Active Substance: DIPHENHYDRAMINE

REACTIONS (1)
  - Drug hypersensitivity [Unknown]
